FAERS Safety Report 9747654 (Version 1)
Quarter: 2013Q4

REPORT INFORMATION
  Report Type: Spontaneous
  Country: US (occurrence: None)
  Receive Date: 20131211
  Receipt Date: 20131211
  Transmission Date: 20140711
  Serious: Yes (Other)
  Sender: FDA-Public Use
  Company Number: None

PATIENT
  Age: 60 Year
  Sex: Male
  Weight: 72.58 kg

DRUGS (2)
  1. DILTIAZEM CD [Suspect]
     Indication: HYPERTENSION
     Route: 048
     Dates: start: 20131205, end: 20131207
  2. INSULIN [Concomitant]

REACTIONS (3)
  - Dizziness [None]
  - Product substitution issue [None]
  - Product quality issue [None]
